FAERS Safety Report 14534744 (Version 1)
Quarter: 2018Q1

REPORT INFORMATION
  Report Type: Spontaneous
  Country: CN (occurrence: CN)
  Receive Date: 20180215
  Receipt Date: 20180215
  Transmission Date: 20180509
  Serious: Yes (Other)
  Sender: FDA-Public Use
  Company Number: CN-GLENMARK PHARMACEUTICALS-2018GMK031933

PATIENT
  Age: 61 Year
  Sex: Male

DRUGS (2)
  1. ROPIVACAINE 0.5% [Suspect]
     Active Substance: ROPIVACAINE
     Indication: ANAESTHESIA PROCEDURE
     Dosage: TEST DOSE OF 4 ML, 2% LIDOCAINE AND 0.5% ROPIVACAINE WERE ADMINISTERED
     Route: 008
  2. LIDOCAINE. [Suspect]
     Active Substance: LIDOCAINE
     Indication: ANAESTHESIA PROCEDURE
     Dosage: TEST DOSE OF 4 ML, 2% LIDOCAINE AND 0.5% ROPIVACAINE WERE ADMINISTERED
     Route: 008

REACTIONS (2)
  - Spinal anaesthesia [Recovering/Resolving]
  - Wrong technique in product usage process [Unknown]
